FAERS Safety Report 16058095 (Version 3)
Quarter: 2019Q2

REPORT INFORMATION
  Report Type: Spontaneous
  Country: CA (occurrence: CA)
  Receive Date: 20190311
  Receipt Date: 20190430
  Transmission Date: 20190711
  Serious: Yes (Hospitalization, Disabling, Other)
  Sender: FDA-Public Use
  Company Number: CA-OCTA-NGAM03519CA

PATIENT
  Age: 29 Year
  Sex: Female
  Weight: 87.5 kg

DRUGS (4)
  1. PANZYGA [Suspect]
     Active Substance: HUMAN IMMUNOGLOBULIN G
     Indication: IMMUNE THROMBOCYTOPENIC PURPURA
     Route: 042
     Dates: start: 20190127, end: 20190127
  2. ECHINACEA [Concomitant]
     Active Substance: ECHINACEA, UNSPECIFIED
     Indication: INFLUENZA LIKE ILLNESS
     Route: 048
  3. VITAMIN C [Concomitant]
     Active Substance: ASCORBIC ACID
     Indication: INFLUENZA LIKE ILLNESS
     Route: 048
  4. DECADRON [Concomitant]
     Active Substance: DEXAMETHASONE
     Indication: PRODUCT USED FOR UNKNOWN INDICATION
     Dosage: FOR 4 DAYS
     Route: 048

REACTIONS (8)
  - Delayed haemolytic transfusion reaction [Unknown]
  - Anaemia [Recovered/Resolved]
  - Jaundice [Recovered/Resolved]
  - Anti A antibody positive [Recovered/Resolved]
  - Malaise [Recovered/Resolved]
  - Drug intolerance [Recovered/Resolved]
  - Pain in extremity [Recovered/Resolved]
  - Body temperature increased [Recovered/Resolved]

NARRATIVE: CASE EVENT DATE: 20190127
